FAERS Safety Report 6651169-X (Version None)
Quarter: 2010Q1

REPORT INFORMATION
  Report Type: 
  Country: None (occurrence: None)
  Receive Date: 20100325
  Receipt Date: 20100316
  Transmission Date: 20100710
  Serious: Yes (Other)
  Sender: FDA-Public Use
  Company Number: US-KINGPHARMUSA00001-K201000314

PATIENT
  Sex: Female
  Weight: 61.678 kg

DRUGS (7)
  1. LEVOXYL [Suspect]
     Indication: HYPOTHYROIDISM
     Dosage: 50 MCG, QD (SOMETIMES)
     Dates: start: 20030101
  2. LEVOXYL [Suspect]
     Dosage: 75 MCG, QD
     Dates: start: 20080701
  3. LEVOXYL [Suspect]
     Dosage: 50 MCG, QD
     Dates: start: 20080901
  4. LEVOXYL [Suspect]
     Dosage: 88 MCG, QD
  5. LEVOXYL [Suspect]
     Dosage: ALTERNATING 75 MCG + 88 MCG, QD
  6. LEVOXYL [Suspect]
     Dosage: ALTERNATING 75 MCG + 88 MCG, QD
  7. LEVOXYL [Suspect]
     Dosage: 50 MCG, QD

REACTIONS (17)
  - ABDOMINAL DISCOMFORT [None]
  - ASTHENIA [None]
  - DEPRESSED MOOD [None]
  - DISTURBANCE IN ATTENTION [None]
  - DRUG INTOLERANCE [None]
  - FATIGUE [None]
  - FEELING COLD [None]
  - GASTROOESOPHAGEAL REFLUX DISEASE [None]
  - MALAISE [None]
  - NAUSEA [None]
  - NERVOUSNESS [None]
  - PALPITATIONS [None]
  - PERIPHERAL COLDNESS [None]
  - POSTNASAL DRIP [None]
  - SLEEP DISORDER [None]
  - SUICIDAL IDEATION [None]
  - THINKING ABNORMAL [None]
